FAERS Safety Report 19125253 (Version 1)
Quarter: 2021Q2

REPORT INFORMATION
  Report Type: Spontaneous
  Country: GB (occurrence: GB)
  Receive Date: 20210413
  Receipt Date: 20210413
  Transmission Date: 20210717
  Serious: Yes (Death)
  Sender: FDA-Public Use
  Company Number: GB-009507513-2104GBR002183

PATIENT
  Age: 76 Year
  Sex: Male
  Weight: 50 kg

DRUGS (9)
  1. METARAMINOL [Concomitant]
     Active Substance: METARAMINOL
     Indication: ILL-DEFINED DISORDER
  2. AMOXICILLIN (+) CLAVULANATE POTASSIUM [Concomitant]
     Active Substance: AMOXICILLIN\CLAVULANATE POTASSIUM
     Indication: ILL-DEFINED DISORDER
  3. ROCURONIUM BROMIDE. [Concomitant]
     Active Substance: ROCURONIUM BROMIDE
     Indication: ILL-DEFINED DISORDER
  4. SUGAMMADEX SODIUM [Suspect]
     Active Substance: SUGAMMADEX SODIUM
     Indication: ANAESTHESIA REVERSAL
     Dosage: 100MG
     Route: 042
     Dates: start: 20210223
  5. ETOMIDATE. [Concomitant]
     Active Substance: ETOMIDATE
     Indication: ILL-DEFINED DISORDER
  6. ALFENTANIL HYDROCHLORIDE. [Concomitant]
     Active Substance: ALFENTANIL HYDROCHLORIDE
     Indication: ILL-DEFINED DISORDER
  7. EPHEDRINE. [Concomitant]
     Active Substance: EPHEDRINE
     Indication: ILL-DEFINED DISORDER
  8. TRAMADOL HYDROCHLORIDE. [Concomitant]
     Active Substance: TRAMADOL HYDROCHLORIDE
     Indication: ILL-DEFINED DISORDER
  9. ACETAMINOPHEN. [Concomitant]
     Active Substance: ACETAMINOPHEN
     Indication: ILL-DEFINED DISORDER

REACTIONS (1)
  - Acute cardiac event [Fatal]

NARRATIVE: CASE EVENT DATE: 20210223
